FAERS Safety Report 11331567 (Version 2)
Quarter: 2015Q3

REPORT INFORMATION
  Report Type: Spontaneous
  Country: BR (occurrence: BR)
  Receive Date: 20150803
  Receipt Date: 20150914
  Transmission Date: 20151125
  Serious: Yes (Other)
  Sender: FDA-Public Use
  Company Number: PHHY2015BR092505

PATIENT
  Age: 7 Year
  Sex: Male

DRUGS (1)
  1. RITALIN [Suspect]
     Active Substance: METHYLPHENIDATE HYDROCHLORIDE
     Indication: ATTENTION DEFICIT/HYPERACTIVITY DISORDER
     Dosage: 1 DF (ONE TABLET OF RITALIN 10 MG, 30 TB AL/AL), QD
     Route: 048
     Dates: start: 20150710

REACTIONS (6)
  - Seizure [Unknown]
  - Salivary hypersecretion [Unknown]
  - Cyanosis [Recovering/Resolving]
  - Agitation [Recovering/Resolving]
  - Dyskinesia [Recovering/Resolving]
  - Insomnia [Recovered/Resolved]

NARRATIVE: CASE EVENT DATE: 20150712
